FAERS Safety Report 5520804-1 (Version None)
Quarter: 2007Q4

REPORT INFORMATION
  Report Type: 
  Country: None (occurrence: None)
  Receive Date: 20071119
  Receipt Date: 20071115
  Transmission Date: 20080405
  Serious: Yes (Death, Hospitalization)
  Sender: FDA-Public Use
  Company Number: IT-BAYER-200715972GDS

PATIENT
  Age: 75 Year
  Sex: Male

DRUGS (10)
  1. SORAFENIB [Suspect]
     Indication: HEPATIC NEOPLASM MALIGNANT
     Dosage: TOTAL DAILY DOSE: 800 MG
     Route: 048
     Dates: start: 20070914
  2. METOPROLOL TARTRATE [Concomitant]
     Indication: LIVER DISORDER
     Route: 048
  3. OMEPRAZOLE [Concomitant]
     Indication: LIVER DISORDER
     Route: 048
  4. ASPIRIN [Concomitant]
     Indication: DRUG USE FOR UNKNOWN INDICATION
     Route: 048
  5. ZOFENOPRIL [Concomitant]
     Indication: LIVER DISORDER
     Route: 048
  6. ZOFENOPRIL [Concomitant]
     Route: 048
  7. XATRAL [Concomitant]
     Indication: DRUG USE FOR UNKNOWN INDICATION
     Route: 048
  8. LORAZEPAM [Concomitant]
     Indication: INSOMNIA
     Route: 048
  9. INSULIN [Concomitant]
     Indication: DIABETES MELLITUS
     Route: 058
  10. FUROSEMIDE [Concomitant]
     Indication: LIVER DISORDER
     Route: 048
     Dates: start: 20070608

REACTIONS (2)
  - HEPATIC NEOPLASM MALIGNANT [None]
  - SCROTAL ULCER [None]
